FAERS Safety Report 19099637 (Version 5)
Quarter: 2021Q2

REPORT INFORMATION
  Report Type: Spontaneous
  Country: FR (occurrence: FR)
  Receive Date: 20210407
  Receipt Date: 20210605
  Transmission Date: 20210717
  Serious: Yes (Life-Threatening, Hospitalization, Other)
  Sender: FDA-Public Use
  Company Number: FR-AUROBINDO-AUR-APL-2021-013810

PATIENT
  Age: 56 Year
  Sex: Male

DRUGS (7)
  1. ESOMEPRAZOLE. [Suspect]
     Active Substance: ESOMEPRAZOLE MAGNESIUM
     Indication: HYPERCHLORHYDRIA
     Dosage: 120 MILLIGRAM, ONCE A DAY
     Route: 065
     Dates: start: 201806
  2. CABERGOLINE. [Concomitant]
     Active Substance: CABERGOLINE
     Indication: BLOOD PROLACTIN INCREASED
     Dosage: UNK
     Route: 065
  3. CINACALCET. [Concomitant]
     Active Substance: CINACALCET
     Indication: HYPERPARATHYROIDISM PRIMARY
     Dosage: UNK
     Route: 065
  4. RANITIDINE. [Concomitant]
     Active Substance: RANITIDINE
     Indication: GASTRINOMA
     Dosage: 600 MILLIGRAM, ONCE A DAY
     Route: 065
  5. ESOMEPRAZOLE. [Suspect]
     Active Substance: ESOMEPRAZOLE MAGNESIUM
     Dosage: 240 MILLIGRAM, ONCE A DAY
     Route: 065
     Dates: start: 20180619, end: 201807
  6. CINACALCET. [Concomitant]
     Active Substance: CINACALCET
     Indication: HYPERCALCAEMIA
  7. ESOMEPRAZOLE. [Suspect]
     Active Substance: ESOMEPRAZOLE MAGNESIUM
     Indication: GASTRINOMA
     Dosage: 80 MILLIGRAM, ONCE A DAY
     Route: 065
     Dates: start: 200508, end: 2017

REACTIONS (23)
  - Hypokalaemia [Unknown]
  - Gastrointestinal haemorrhage [Recovered/Resolved]
  - Cerebellar syndrome [Recovering/Resolving]
  - Renal impairment [Unknown]
  - Gastritis hypertrophic [Unknown]
  - Weight decreased [Unknown]
  - Nystagmus [Unknown]
  - Pancreatic mass [Unknown]
  - Electrolyte imbalance [Unknown]
  - Cerebellar ataxia [Not Recovered/Not Resolved]
  - Melaena [Unknown]
  - Loss of consciousness [Recovering/Resolving]
  - Hypomagnesaemia [Recovered/Resolved]
  - Oesophagitis ulcerative [Unknown]
  - Abdominal pain [Unknown]
  - Metabolic alkalosis [Unknown]
  - Vomiting [Unknown]
  - Dehydration [Unknown]
  - Dysphagia [Unknown]
  - Seizure [Unknown]
  - Erosive duodenitis [Unknown]
  - Vertigo [Unknown]
  - Gait disturbance [Recovering/Resolving]

NARRATIVE: CASE EVENT DATE: 2018
